FAERS Safety Report 17444122 (Version 1)
Quarter: 2020Q1

REPORT INFORMATION
  Report Type: Spontaneous
  Country: IN (occurrence: IN)
  Receive Date: 20200221
  Receipt Date: 20200221
  Transmission Date: 20200409
  Serious: Yes (Other)
  Sender: FDA-Public Use
  Company Number: IN-STRIDES ARCOLAB LIMITED-2020SP001527

PATIENT
  Age: 62 Year
  Sex: Female

DRUGS (3)
  1. TRIAMCINOLONE ACETONIDE. [Suspect]
     Active Substance: TRIAMCINOLONE ACETONIDE
     Indication: VITRECTOMY
     Dosage: 0.5 CC OF SUBTENON TRIAMCINOLONE ACETONIDE INJECTION
     Route: 031
  2. TRIAMCINOLONE ACETONIDE. [Suspect]
     Active Substance: TRIAMCINOLONE ACETONIDE
     Indication: INTERNAL LIMITING MEMBRANE PEELING
  3. TRIAMCINOLONE ACETONIDE. [Suspect]
     Active Substance: TRIAMCINOLONE ACETONIDE
     Indication: POST PROCEDURAL INFLAMMATION

REACTIONS (9)
  - Necrotising scleritis [Recovered/Resolved]
  - Persistent corneal epithelial defect [Recovered/Resolved]
  - Keratitis fungal [Recovered/Resolved]
  - Eye abscess [Recovered/Resolved]
  - Cataract [Unknown]
  - Hypopyon [Unknown]
  - Ocular hyperaemia [Recovered/Resolved]
  - Corneal thinning [Unknown]
  - Aspergillus infection [Recovered/Resolved]
